FAERS Safety Report 6628187-0 (Version None)
Quarter: 2010Q1

REPORT INFORMATION
  Report Type: 
  Country: None (occurrence: None)
  Receive Date: 20100311
  Receipt Date: 20091203
  Transmission Date: 20100710
  Serious: No
  Sender: FDA-Public Use
  Company Number: A0833128A

PATIENT
  Age: 44 Year
  Sex: Male

DRUGS (1)
  1. NICORETTE [Suspect]

REACTIONS (4)
  - DRUG ADMINISTRATION ERROR [None]
  - HYPERSENSITIVITY [None]
  - THERMAL BURN [None]
  - TONGUE ULCERATION [None]
